FAERS Safety Report 8357810 (Version 3)
Quarter: 2013Q1

REPORT INFORMATION
  Report Type: Spontaneous
  Country: US (occurrence: US)
  Receive Date: 20120127
  Receipt Date: 20130102
  Transmission Date: 20140127
  Serious: Yes (Hospitalization, Congenital Anomaly, Other)
  Sender: FDA-Public Use
  Company Number: US-PFIZER INC-2012019346

PATIENT
  Sex: Male

DRUGS (1)
  1. ZOLOFT [Suspect]
     Indication: DEPRESSION
     Dosage: UNK
     Route: 064
     Dates: start: 2000, end: 2005

REACTIONS (10)
  - Maternal exposure timing unspecified [Unknown]
  - Skull malformation [Unknown]
  - Heart disease congenital [Unknown]
  - Heart block congenital [Unknown]
  - Pulmonary valve stenosis congenital [Unknown]
  - Ear malformation [Unknown]
  - Cardiac disorder [Unknown]
  - Cardiac failure congestive [Unknown]
  - Tricuspid valve incompetence [Unknown]
  - Deafness unilateral [Unknown]
